FAERS Safety Report 7573727-0 (Version None)
Quarter: 2011Q2

REPORT INFORMATION
  Report Type: 
  Country: None (occurrence: None)
  Receive Date: 20110627
  Receipt Date: 20110617
  Transmission Date: 20111010
  Serious: Yes (Hospitalization)
  Sender: FDA-Public Use
  Company Number: AT-PFIZER INC-2011100636

PATIENT
  Age: 42 Year
  Sex: Male
  Weight: 73 kg

DRUGS (8)
  1. POTASSIUM CHLORIDE [Concomitant]
     Dosage: 1 TABLET, 1X/DAY
     Route: 048
     Dates: start: 20110511, end: 20110516
  2. IRINOTECAN HCL [Suspect]
     Indication: COLORECTAL CANCER METASTATIC
     Dosage: 180 MG/M2, ON D1, EVERY 2 WEEKS
     Route: 042
     Dates: start: 20110316, end: 20110427
  3. FLUOROURACIL [Suspect]
     Dosage: 2400 MG/M2, ON D1-2, EVERY 2 WEEKS
     Route: 042
     Dates: start: 20110316, end: 20110428
  4. LEUCOVORIN CALCIUM [Suspect]
     Indication: COLORECTAL CANCER METASTATIC
     Dosage: 400 MG/M2, ON D1, EVERY 2 WEEKS
     Route: 042
     Dates: start: 20110316, end: 20110427
  5. BEVACIZUMAB [Suspect]
     Indication: COLORECTAL CANCER METASTATIC
     Dosage: 5 MG/KG, ON D1, EVERY 2 WEEKS
     Route: 042
     Dates: start: 20110316, end: 20110427
  6. PANTOPRAZOLE SODIUM [Concomitant]
     Dosage: 40 MG, 1X/DAY
     Route: 048
     Dates: start: 20110307
  7. FLUOROURACIL [Suspect]
     Indication: COLORECTAL CANCER METASTATIC
     Dosage: 400 MG/M2, ON D1, EVERY 2 WEEKS
     Route: 040
     Dates: start: 20110316
  8. ALPRAZOLAM [Concomitant]
     Dosage: 0.125 MG, 1X/DAY
     Route: 048
     Dates: start: 20110510, end: 20110516

REACTIONS (1)
  - PNEUMONIA PRIMARY ATYPICAL [None]
